FAERS Safety Report 4278345-8 (Version None)
Quarter: 2004Q1

REPORT INFORMATION
  Report Type: 
  Country: None (occurrence: None)
  Receive Date: 20040123
  Receipt Date: 20031020
  Transmission Date: 20041129
  Serious: Yes (Other)
  Sender: FDA-Public Use
  Company Number: US-ROCHE-349755

PATIENT
  Age: 57 Year
  Sex: Male
  Weight: 84.5 kg

DRUGS (1)
  1. FUZEON [Suspect]
     Indication: HIV INFECTION
     Route: 058
     Dates: start: 20030829

REACTIONS (3)
  - CONTUSION [None]
  - FALL [None]
  - WRIST FRACTURE [None]
